FAERS Safety Report 9077124 (Version 1)
Quarter: 2013Q1

REPORT INFORMATION
  Report Type: Report from Study
  Country: US (occurrence: US)
  Receive Date: 20130129
  Receipt Date: 20130129
  Transmission Date: 20140127
  Serious: No
  Sender: FDA-Public Use
  Company Number: US-ABBOTT-12P-163-0924373-00

PATIENT
  Age: 52 None
  Sex: Male

DRUGS (3)
  1. HUMIRA 40 MG/0.8 ML PEN [Suspect]
     Indication: RHEUMATOID ARTHRITIS
     Dates: start: 20120405
  2. IMURAN [Concomitant]
     Indication: RHEUMATOID ARTHRITIS
  3. INDOCIN [Concomitant]
     Indication: RHEUMATOID ARTHRITIS

REACTIONS (3)
  - Incorrect route of drug administration [Recovered/Resolved]
  - Injection site pain [Recovered/Resolved]
  - Injection site pain [Not Recovered/Not Resolved]
